FAERS Safety Report 8553714-6 (Version None)
Quarter: 2012Q3

REPORT INFORMATION
  Report Type: 
  Country: None (occurrence: None)
  Receive Date: 20120731
  Receipt Date: 20120726
  Transmission Date: 20120928
  Serious: Yes (Other)
  Sender: FDA-Public Use
  Company Number: US-PFIZER INC-2012182714

PATIENT
  Sex: Female
  Weight: 47.619 kg

DRUGS (5)
  1. RANIBIZUMAB [Suspect]
     Indication: MACULAR DEGENERATION
     Dosage: 1 MG, UNK
     Dates: start: 20120101
  2. AFLIBERCEPT [Suspect]
     Indication: MACULAR DEGENERATION
     Dosage: UNK
     Dates: start: 20120701
  3. KEPPRA [Suspect]
     Indication: CONVULSION
     Dosage: 500 MG, UNK
  4. SYNTHROID [Concomitant]
     Indication: THYROIDECTOMY
     Dosage: 200 UG, UNK
  5. DILANTIN [Suspect]
     Indication: CONVULSION
     Dosage: 230 MG, UNK
     Dates: start: 19700101

REACTIONS (4)
  - MACULAR DEGENERATION [None]
  - PAIN [None]
  - DRUG INEFFECTIVE [None]
  - CONVULSION [None]
